FAERS Safety Report 4762514-4 (Version None)
Quarter: 2005Q3

REPORT INFORMATION
  Report Type: 
  Country: None (occurrence: None)
  Receive Date: 20050907
  Receipt Date: 20050829
  Transmission Date: 20060218
  Serious: Yes (Other)
  Sender: FDA-Public Use
  Company Number: PHRM2005FR02353

PATIENT
  Age: 64 Year
  Sex: Male

DRUGS (3)
  1. TAREG [Suspect]
     Indication: HYPERTENSION
     Dosage: 80 MG, QD
     Route: 048
     Dates: end: 20041101
  2. TAREG [Suspect]
     Dosage: 160 MG, QD
     Route: 048
     Dates: start: 20041101
  3. ZANIDIP [Concomitant]
     Route: 048

REACTIONS (1)
  - VITREOUS HAEMORRHAGE [None]
